FAERS Safety Report 4893667-5 (Version None)
Quarter: 2006Q1

REPORT INFORMATION
  Report Type: 
  Country: None (occurrence: None)
  Receive Date: 20060127
  Receipt Date: 20051104
  Transmission Date: 20060701
  Serious: Yes (Other)
  Sender: FDA-Public Use
  Company Number: 200513613EU

PATIENT
  Age: 48 Year
  Sex: Female

DRUGS (9)
  1. NICORETTE [Suspect]
     Indication: STRESS
     Route: 048
  2. LIOTHYRONINE SODIUM [Concomitant]
     Indication: THYROID DISORDER
     Dosage: 25MCG PER DAY
  3. TOPIRAMATE [Concomitant]
     Indication: EPILEPSY
     Dosage: 600MG PER DAY
     Dates: start: 20010101
  4. GABAPENTIN [Concomitant]
     Indication: BIPOLAR DISORDER
     Dosage: 1200MG PER DAY
     Dates: start: 20050901
  5. QUETIAPINE FUMARATE [Concomitant]
     Indication: BIPOLAR DISORDER
     Dosage: 250MG PER DAY
     Dates: start: 20020101
  6. DYAZIDE [Concomitant]
     Indication: DIURETIC THERAPY
     Dates: start: 20050901
  7. CLONAZEPAM [Concomitant]
     Indication: NERVOUSNESS
     Dosage: 12MG PER DAY
     Dates: start: 19780101
  8. METHOCARBAMOL [Concomitant]
     Indication: FIBROMYALGIA
     Dosage: 2000MG PER DAY
     Dates: start: 20010101
  9. OXYCODONE [Concomitant]
     Indication: FIBROMYALGIA
     Dosage: 10MG PER DAY
     Dates: start: 20010101

REACTIONS (9)
  - ABDOMINAL DISTENSION [None]
  - BREAST CANCER [None]
  - BREAST CANCER FEMALE [None]
  - DEPENDENCE [None]
  - DRUG DEPENDENCE [None]
  - DYSPNOEA [None]
  - MEDICATION ERROR [None]
  - OESTROGEN RECEPTOR ASSAY POSITIVE [None]
  - OVERDOSE [None]
